FAERS Safety Report 18556129 (Version 1)
Quarter: 2020Q4

REPORT INFORMATION
  Report Type: Spontaneous
  Country: US (occurrence: US)
  Receive Date: 20201128
  Receipt Date: 20201128
  Transmission Date: 20210114
  Serious: No
  Sender: FDA-Public Use
  Company Number: US-ACCORD-202440

PATIENT
  Sex: Female
  Weight: 63.5 kg

DRUGS (3)
  1. FLUVOXAMINE [Concomitant]
     Active Substance: FLUVOXAMINE
  2. TACROLIMUS. [Suspect]
     Active Substance: TACROLIMUS
     Indication: ECZEMA
     Dosage: TWICE A DAY
     Route: 061
     Dates: start: 202008
  3. LIDEX [Concomitant]
     Active Substance: FLUOCINONIDE
     Dosage: STEROID OINTMENT
     Route: 061

REACTIONS (1)
  - Allergic reaction to excipient [Not Recovered/Not Resolved]
